FAERS Safety Report 14651265 (Version 5)
Quarter: 2018Q2

REPORT INFORMATION
  Report Type: Spontaneous
  Country: FR (occurrence: FR)
  Receive Date: 20180316
  Receipt Date: 20180626
  Transmission Date: 20180711
  Serious: Yes (Hospitalization, Other)
  Sender: FDA-Public Use
  Company Number: FR-009507513-1803FRA006069

PATIENT
  Age: 67 Year
  Sex: Male
  Weight: 71 kg

DRUGS (1)
  1. KEYTRUDA [Suspect]
     Active Substance: PEMBROLIZUMAB
     Indication: LUNG ADENOCARCINOMA
     Dosage: 150 MG, UNK
     Route: 042
     Dates: start: 20180201, end: 2018

REACTIONS (5)
  - Loss of consciousness [Recovered/Resolved]
  - Oxygen saturation decreased [Unknown]
  - Hypersensitivity [Recovered/Resolved]
  - Pulse absent [Unknown]
  - Tachycardia [Unknown]

NARRATIVE: CASE EVENT DATE: 2018
